FAERS Safety Report 8872157 (Version 2)
Quarter: 2012Q4

REPORT INFORMATION
  Report Type: 
  Country: CZ (occurrence: CZ)
  Receive Date: 20121030
  Receipt Date: 20121112
  Transmission Date: 20130627
  Serious: Yes (Death, Hospitalization, Other)
  Sender: FDA-Public Use
  Company Number: CZ-ELI_LILLY_AND_COMPANY-CZ201210005847

PATIENT
  Age: 71 Year
  Sex: Female

DRUGS (5)
  1. FORSTEO [Suspect]
     Indication: OSTEOPOROSIS
     Dosage: 20 ug, qd
     Route: 058
     Dates: start: 20101218, end: 20121001
  2. METHYLPREDNISOLON [Concomitant]
     Dosage: 48 mg, qd
     Route: 048
     Dates: start: 200803
  3. METHYLPREDNISOLON [Concomitant]
     Dosage: 16 mg, qd
     Route: 048
     Dates: start: 200803
  4. IMMUNOSUPPRESSANTS [Concomitant]
     Indication: SYSTEMIC LUPUS ERYTHEMATOSUS
     Dosage: UNK
     Dates: start: 200803
  5. AZASAN [Concomitant]
     Dosage: 100 mg, qd
     Dates: start: 200803

REACTIONS (4)
  - Pneumonia [Fatal]
  - Fall [Unknown]
  - Immunosuppression [Unknown]
  - Systemic lupus erythematosus [Unknown]
